FAERS Safety Report 9189873 (Version 3)
Quarter: 2013Q1

REPORT INFORMATION
  Report Type: Spontaneous
  Country: SG (occurrence: None)
  Receive Date: 20130322
  Receipt Date: 20130326
  Transmission Date: 20140127
  Serious: Yes (Hospitalization)
  Sender: FDA-Public Use
  Company Number: SYM-2013-01780

PATIENT
  Age: 74 Year
  Sex: Female

DRUGS (17)
  1. 5-FU [Suspect]
     Indication: COLORECTAL CANCER METASTATIC
     Dosage: 3816 MG, EVERY OTHER WEEK, INTRAVENOUS DRIP
     Route: 042
     Dates: start: 20130117, end: 20130117
  2. BLINDED THERAPY (OTHER THERAPEUTIC PRODUCTS) (SOLUTION FOR INFUSION) [Suspect]
     Indication: COLORECTAL CANCER METASTATIC
     Dosage: 238 MG, EVERY OTHER WEEK, INTRAVENOUS DRIP
     Route: 042
     Dates: start: 20130117, end: 20130117
  3. IRINOTECAN [Suspect]
     Indication: COLORECTAL CANCER METASTATIC
     Dosage: 286 MG, EVERY OTHER WEEK, INTRAVENOUS DRIP
     Route: 042
     Dates: start: 20130117, end: 20130117
  4. LEUCOVORIN [Suspect]
     Indication: COLORECTAL CANCER METASTATIC
     Route: 042
     Dates: start: 20130117, end: 20130117
  5. METOPROLOL (METOPROLOL) [Concomitant]
  6. NEUROBION (NEUROBION) [Concomitant]
  7. PARACETAMOL (PARACETAMOL) [Concomitant]
  8. FLUIMUCIL (ACETYLCYSTEINE) [Concomitant]
  9. LOPERAMIDE (LOPERAMIDE) [Concomitant]
  10. ONDANSETRON (ONDANSETRON) [Concomitant]
  11. DEXAMETHASONE (DEXAMETHASONE) [Concomitant]
  12. ATROPINE (ATROPINE) [Concomitant]
  13. BENADRYL (DIPHENHYDRAMINE HYDROCHLORIDE) [Concomitant]
  14. RANITIDINE (RANITIDINE) [Concomitant]
  15. CRITIC-AID (ZINC OXIDE) [Concomitant]
  16. HYDROCORTISONE (HYDROCORTISONE) [Concomitant]
  17. OXALIPLATIN (OXALIPLATIN) [Concomitant]

REACTIONS (1)
  - Febrile neutropenia [None]
